FAERS Safety Report 12854132 (Version 2)
Quarter: 2016Q4

REPORT INFORMATION
  Report Type: Spontaneous
  Country: US (occurrence: US)
  Receive Date: 20161017
  Receipt Date: 20161102
  Transmission Date: 20170207
  Serious: No
  Sender: FDA-Public Use
  Company Number: US-PFIZER INC-2016478788

PATIENT
  Age: 43 Year
  Sex: Female

DRUGS (1)
  1. IBRANCE [Suspect]
     Active Substance: PALBOCICLIB
     Dosage: 125 MG, CYCLIC (1 CAPSULE DAILY FOR 21 DAYS ON THEN 7 DAYS OFF), (1 CAP QD FOR 21DAYS THEN 7 DAY)
     Route: 048
     Dates: start: 20160909

REACTIONS (1)
  - White blood cell count decreased [Unknown]
